FAERS Safety Report 19842257 (Version 1)
Quarter: 2021Q3

REPORT INFORMATION
  Report Type: Report from Study
  Country: DE (occurrence: DE)
  Receive Date: 20210915
  Receipt Date: 20210915
  Transmission Date: 20211014
  Serious: Yes (Hospitalization)
  Sender: FDA-Public Use
  Company Number: DE-UCBSA-2021042593

PATIENT
  Sex: Female
  Weight: 73 kg

DRUGS (4)
  1. CERTOLIZUMAB PEGOL [Suspect]
     Active Substance: CERTOLIZUMAB PEGOL
     Indication: PSORIATIC ARTHROPATHY
     Dosage: 200 MILLIGRAM
     Route: 058
     Dates: start: 20191001, end: 2020
  2. AMPHETAMINE [Concomitant]
     Active Substance: AMPHETAMINE
     Indication: GASTROINTESTINAL INFECTION
  3. CERTOLIZUMAB PEGOL [Suspect]
     Active Substance: CERTOLIZUMAB PEGOL
     Indication: PSORIASIS
  4. TINZAPARIN [Concomitant]
     Active Substance: TINZAPARIN
     Indication: GASTROINTESTINAL INFECTION
     Dosage: UNK
     Dates: start: 20201102, end: 20201104

REACTIONS (14)
  - Nausea [Recovered/Resolved]
  - Hyperhidrosis [Unknown]
  - White blood cell count increased [Unknown]
  - Gastrointestinal infection [Recovered/Resolved]
  - Blood pressure increased [Unknown]
  - Red blood cell count increased [Unknown]
  - Maternal exposure before pregnancy [Unknown]
  - Unevaluable event [Unknown]
  - Haemoglobin decreased [Unknown]
  - Dizziness [Unknown]
  - SARS-CoV-2 test negative [Unknown]
  - Maternal exposure during pregnancy [Unknown]
  - Vomiting [Recovered/Resolved]
  - Cardiovascular disorder [Recovered/Resolved]

NARRATIVE: CASE EVENT DATE: 202003
